FAERS Safety Report 26077828 (Version 1)
Quarter: 2025Q4

REPORT INFORMATION
  Report Type: Spontaneous
  Country: US (occurrence: US)
  Receive Date: 20251122
  Receipt Date: 20251122
  Transmission Date: 20260117
  Serious: Yes (Other)
  Sender: MDD OPERATIONS
  Company Number: US-MDD US Operations-MDD202510-004121

PATIENT
  Age: 58 Year
  Sex: Male
  Weight: 65.7 kg

DRUGS (1)
  1. ONAPGO [Suspect]
     Active Substance: APOMORPHINE HYDROCHLORIDE
     Indication: Product used for unknown indication
     Route: 058
     Dates: start: 20251006

REACTIONS (3)
  - Hypotension [Recovered/Resolved]
  - Pallor [Recovered/Resolved]
  - Malaise [Recovered/Resolved]

NARRATIVE: CASE EVENT DATE: 20251006
